FAERS Safety Report 20453966 (Version 1)
Quarter: 2022Q1

REPORT INFORMATION
  Report Type: Spontaneous
  Country: JP (occurrence: JP)
  Receive Date: 20220210
  Receipt Date: 20220210
  Transmission Date: 20220423
  Serious: Yes (Death)
  Sender: FDA-Public Use
  Company Number: JP-JNJFOC-A-CH2017-149236

PATIENT
  Sex: Male

DRUGS (12)
  1. OPSUMIT [Suspect]
     Active Substance: MACITENTAN
     Indication: Pulmonary arterial hypertension
     Dosage: 10 MG, QD
     Route: 048
     Dates: start: 20161021
  2. OPSUMIT [Suspect]
     Active Substance: MACITENTAN
     Indication: Pulmonary arterial hypertension
     Dosage: IN THE MORNING
     Route: 048
     Dates: start: 20161025, end: 20170114
  3. OXYGEN [Concomitant]
     Active Substance: OXYGEN
     Dosage: DOSE UNKNOWN
     Route: 055
  4. BERAPROST SODIUM [Concomitant]
     Active Substance: BERAPROST SODIUM
     Indication: Pulmonary hypertension
     Route: 048
     Dates: start: 20121022, end: 20170114
  5. SAMSCA [Concomitant]
     Active Substance: TOLVAPTAN
     Indication: Pulmonary hypertension
     Route: 048
     Dates: start: 20161224, end: 20170114
  6. REVATIO [Concomitant]
     Active Substance: SILDENAFIL CITRATE
     Indication: Pulmonary hypertension
     Route: 048
     Dates: start: 20130117, end: 20170114
  7. AZOSEMIDE [Concomitant]
     Active Substance: AZOSEMIDE
     Indication: Pulmonary hypertension
     Route: 048
     Dates: start: 20121022, end: 20170114
  8. LANSOPRAZOLE [Concomitant]
     Active Substance: LANSOPRAZOLE
     Indication: Gastrooesophageal reflux disease
     Route: 048
     Dates: start: 20130325, end: 20170114
  9. SPIRONOLACTONE [Concomitant]
     Active Substance: SPIRONOLACTONE
     Indication: Pulmonary hypertension
     Route: 048
     Dates: start: 20130325, end: 20170114
  10. ALLOPURINOL [Concomitant]
     Active Substance: ALLOPURINOL
     Indication: Hyperuricaemia
     Route: 048
     Dates: start: 20130325, end: 20170114
  11. UPTRAVI [Concomitant]
     Active Substance: SELEXIPAG
     Indication: Pulmonary hypertension
     Route: 048
     Dates: start: 20161224, end: 20170114
  12. WARFARIN [Concomitant]
     Active Substance: WARFARIN
     Indication: Pulmonary hypertension
     Route: 048
     Dates: start: 20121108, end: 20170114

REACTIONS (2)
  - Pulmonary hypertension [Fatal]
  - Fall [Unknown]

NARRATIVE: CASE EVENT DATE: 20170101
